FAERS Safety Report 4555545-0 (Version None)
Quarter: 2005Q1

REPORT INFORMATION
  Report Type: 
  Country: None (occurrence: None)
  Receive Date: 20050119
  Receipt Date: 20041214
  Transmission Date: 20050727
  Serious: Yes (Other)
  Sender: FDA-Public Use
  Company Number: AR-NOVOPROD-241096

PATIENT
  Age: 26 Year
  Sex: Female
  Weight: 44 kg

DRUGS (3)
  1. INSULIN DETEMIR [Suspect]
     Indication: DIABETES MELLITUS INSULIN-DEPENDENT
     Dosage: 20 U, QD
     Route: 058
     Dates: start: 20040824, end: 20041214
  2. NOVORAPID PENFILL [Suspect]
     Indication: DIABETES MELLITUS INSULIN-DEPENDENT
     Dosage: 21 IU, QD
     Route: 058
     Dates: start: 20040824, end: 20041214
  3. SERTRALINE HCL [Concomitant]
     Dosage: 25 MG, QD
     Route: 048
     Dates: start: 20031201

REACTIONS (5)
  - BLINDNESS UNILATERAL [None]
  - DIABETIC RETINOPATHY [None]
  - RETINAL DETACHMENT [None]
  - RETINOPATHY PROLIFERATIVE [None]
  - VISUAL ACUITY REDUCED [None]
